FAERS Safety Report 5976656-9 (Version None)
Quarter: 2008Q4

REPORT INFORMATION
  Report Type: 
  Country: None (occurrence: None)
  Receive Date: 20081201
  Receipt Date: 20081201
  Transmission Date: 20090506
  Serious: Yes (Life-Threatening, Hospitalization)
  Sender: FDA-Public Use
  Company Number: None

PATIENT
  Sex: Male
  Weight: 74.8435 kg

DRUGS (2)
  1. FLOMAX [Suspect]
     Indication: PROSTATITIS
     Dosage: 0.4MG 1XDAY
     Dates: start: 20081023
  2. FLOMAX [Suspect]
     Indication: URINARY TRACT INFECTION
     Dosage: 0.4MG 1XDAY
     Dates: start: 20081023

REACTIONS (2)
  - BLOOD PRESSURE DECREASED [None]
  - LOSS OF CONSCIOUSNESS [None]
